FAERS Safety Report 13909030 (Version 1)
Quarter: 2017Q3

REPORT INFORMATION
  Report Type: Spontaneous
  Country: US (occurrence: US)
  Receive Date: 20170828
  Receipt Date: 20170828
  Transmission Date: 20171127
  Serious: No
  Sender: FDA-Public Use
  Company Number: US-ENDO PHARMACEUTICALS INC-2016-005350

PATIENT
  Sex: Female
  Weight: 58.11 kg

DRUGS (1)
  1. PREDNISONE TABLETS [Suspect]
     Active Substance: PREDNISONE
     Indication: CROHN^S DISEASE
     Route: 065

REACTIONS (4)
  - Gait inability [Recovered/Resolved]
  - Swelling face [Recovered/Resolved]
  - Off label use [Recovered/Resolved]
  - Joint fluid drainage [Recovered/Resolved]
